FAERS Safety Report 10330273 (Version 3)
Quarter: 2014Q4

REPORT INFORMATION
  Report Type: Spontaneous
  Country: IT (occurrence: IT)
  Receive Date: 20140721
  Receipt Date: 20141202
  Transmission Date: 20150528
  Serious: Yes (Hospitalization)
  Sender: FDA-Public Use
  Company Number: PHHY2014IT086487

PATIENT
  Age: 70 Year
  Sex: Male

DRUGS (1)
  1. AMIODARONE [Suspect]
     Active Substance: AMIODARONE
     Dosage: 200 MG, QD
     Route: 048
     Dates: start: 20130506

REACTIONS (2)
  - Atrial fibrillation [Unknown]
  - Renal failure [Unknown]

NARRATIVE: CASE EVENT DATE: 20131227
